FAERS Safety Report 6591416-6 (Version None)
Quarter: 2010Q1

REPORT INFORMATION
  Report Type: 
  Country: None (occurrence: None)
  Receive Date: 20100219
  Receipt Date: 20100209
  Transmission Date: 20100710
  Serious: Yes (Death)
  Sender: FDA-Public Use
  Company Number: ES-WATSON-2010-01663

PATIENT
  Age: 33 Year
  Sex: Female

DRUGS (3)
  1. PREDNISONE TAB [Suspect]
     Indication: DERMATOMYOSITIS
     Dosage: 1 MG, DAILY
     Dates: start: 19990101
  2. METHOTREXATE [Suspect]
     Indication: DERMATOMYOSITIS
     Dosage: 10 MG, 1/WEEK
  3. AZATHIOPRINE [Suspect]
     Indication: DERMATOMYOSITIS
     Dosage: 150 MG, DAILY

REACTIONS (3)
  - EPSTEIN-BARR VIRUS ASSOCIATED LYMPHOPROLIFERATIVE DISORDER [None]
  - LYMPHOMA [None]
  - MULTI-ORGAN FAILURE [None]
